FAERS Safety Report 7909515 (Version 3)
Quarter: 2013Q4

REPORT INFORMATION
  Report Type: Spontaneous
  Country: US (occurrence: US)
  Receive Date: 20110421
  Receipt Date: 20131115
  Transmission Date: 20140711
  Serious: No
  Sender: FDA-Public Use
  Company Number: US-ASTRAZENECA-2010SE49179

PATIENT
  Age: 51 Year
  Sex: Female
  Weight: 53.5 kg

DRUGS (13)
  1. TOPROL XL [Suspect]
     Indication: HYPERTENSION
     Route: 048
  2. TOPROL XL [Suspect]
     Indication: HYPERTENSION
     Route: 048
  3. TOPROL XL [Suspect]
     Indication: HYPERTENSION
     Route: 048
  4. CRESTOR [Suspect]
     Route: 048
  5. KLONIPIN [Concomitant]
     Indication: ANXIETY
     Route: 048
  6. LEXAPRO [Concomitant]
     Indication: DEPRESSION
     Route: 048
  7. LEXAPRO [Concomitant]
     Indication: ANXIETY
     Route: 048
  8. CITALOPRAM [Concomitant]
     Indication: DEPRESSION
     Route: 048
  9. CITALOPRAM [Concomitant]
     Indication: ANXIETY
     Route: 048
  10. HYDROCHLORITHIAZIDE [Concomitant]
     Indication: BLOOD PRESSURE ABNORMAL
     Route: 048
  11. HYDROCHLORITHIAZIDE [Concomitant]
     Indication: DIURETIC THERAPY
     Route: 048
  12. HYDROCODONE [Concomitant]
     Indication: PAIN
     Dosage: 10 MG 325 MG NR
     Route: 048
  13. PAIN MEDICATIONS (UNSPECIFIED) [Concomitant]
     Indication: PAIN

REACTIONS (15)
  - Alopecia [Unknown]
  - Nightmare [Unknown]
  - Blood glucose increased [Unknown]
  - Glucose tolerance impaired [Unknown]
  - Fatigue [Unknown]
  - Night sweats [Unknown]
  - Burning sensation [Unknown]
  - Feeling abnormal [Unknown]
  - Sleep terror [Unknown]
  - Drug hypersensitivity [Unknown]
  - Hypertension [Unknown]
  - Off label use [Unknown]
  - Intentional drug misuse [Unknown]
  - Drug dose omission [Unknown]
  - Drug effect incomplete [Unknown]
